FAERS Safety Report 5256647-6 (Version None)
Quarter: 2007Q1

REPORT INFORMATION
  Report Type: 
  Country: None (occurrence: None)
  Receive Date: 20070302
  Receipt Date: 20070221
  Transmission Date: 20070707
  Serious: Yes (Death)
  Sender: FDA-Public Use
  Company Number: 163-21880-07020562

PATIENT
  Age: 62 Year
  Sex: Male
  Weight: 78 kg

DRUGS (11)
  1. REVLIMID [Suspect]
     Indication: MULTIPLE MYELOMA
     Dosage: 5 MG, DAILY, ORAL 25 MG, DAILY, ORAL 30 MG, DAILY ORAL
     Route: 048
     Dates: start: 20070129, end: 20070201
  2. REVLIMID [Suspect]
     Indication: MULTIPLE MYELOMA
     Dosage: 5 MG, DAILY, ORAL 25 MG, DAILY, ORAL 30 MG, DAILY ORAL
     Route: 048
     Dates: start: 20061228
  3. GABAPENTIN [Concomitant]
  4. FOLIC ACID [Concomitant]
  5. DEXAMETHASONE [Concomitant]
  6. KEPPRA [Concomitant]
  7. BIAXIN [Concomitant]
  8. BACTRIM [Concomitant]
  9. PROCRIT [Concomitant]
  10. ACYCLOVIR [Concomitant]
  11. MULTIVITAMIN (MULTIVITAMIN ^LAPPE^) [Concomitant]

REACTIONS (10)
  - BETA 2 MICROGLOBULIN INCREASED [None]
  - BLOOD CREATININE INCREASED [None]
  - BLOOD UREA INCREASED [None]
  - CHEST DISCOMFORT [None]
  - CONVULSION [None]
  - DYSPNOEA [None]
  - NEUROPATHY [None]
  - PULMONARY HAEMORRHAGE [None]
  - TREMOR [None]
  - WHITE BLOOD CELL COUNT DECREASED [None]
